FAERS Safety Report 9728473 (Version 1)
Quarter: 2013Q4

REPORT INFORMATION
  Report Type: Report from Study
  Country: JP (occurrence: JP)
  Receive Date: 20131204
  Receipt Date: 20131204
  Transmission Date: 20140711
  Serious: Yes (Other)
  Sender: FDA-Public Use
  Company Number: JP-BAYER-2013-145936

PATIENT
  Age: 86 Year
  Sex: Male
  Weight: 59 kg

DRUGS (8)
  1. XARELTO [Suspect]
     Indication: CEREBROVASCULAR ACCIDENT PROPHYLAXIS
     Dosage: 10 MG, QD
     Route: 048
     Dates: start: 20130527, end: 20130611
  2. XARELTO [Interacting]
     Indication: THROMBOSIS PROPHYLAXIS
  3. XARELTO [Interacting]
     Indication: ATRIAL FIBRILLATION
  4. BAYASPIRIN [Interacting]
     Dosage: DAILY DOSE 100 MG
     Route: 048
  5. RETICOLAN [Concomitant]
     Dosage: DAILY DOSE 1.5 MG
     Route: 048
  6. ANPLAG [Concomitant]
     Dosage: DAILY DOSE 300 MG
     Route: 048
  7. NORVASC [Concomitant]
     Dosage: DAILY DOSE 5 MG
     Route: 048
  8. LIVALO [Concomitant]
     Dosage: DAILY DOSE 1 MG
     Route: 048

REACTIONS (3)
  - Haemorrhage [Recovering/Resolving]
  - Contusion [Recovering/Resolving]
  - Drug interaction [None]
